FAERS Safety Report 13069822 (Version 1)
Quarter: 2016Q4

REPORT INFORMATION
  Report Type: Spontaneous
  Country: US (occurrence: US)
  Receive Date: 20161228
  Receipt Date: 20161228
  Transmission Date: 20170207
  Serious: No
  Sender: FDA-Public Use
  Company Number: US-BIOGEN-2016BI00333877

PATIENT
  Sex: Female

DRUGS (1)
  1. AVONEX [Suspect]
     Active Substance: INTERFERON BETA-1A
     Indication: MULTIPLE SCLEROSIS
     Route: 065
     Dates: start: 19970601

REACTIONS (6)
  - Limb mass [Unknown]
  - Cystitis [Unknown]
  - Dehydration [Unknown]
  - Influenza like illness [Unknown]
  - Muscle spasms [Unknown]
  - Drug ineffective [Unknown]
